FAERS Safety Report 11694136 (Version 1)
Quarter: 2015Q4

REPORT INFORMATION
  Report Type: Spontaneous
  Country: US (occurrence: US)
  Receive Date: 20151103
  Receipt Date: 20151103
  Transmission Date: 20160304
  Serious: Yes (Hospitalization)
  Sender: FDA-Public Use
  Company Number: US-SMITH AND NEPHEW, INC-2015SMT00450

PATIENT
  Age: 44 Year
  Sex: Male
  Weight: 73.16 kg

DRUGS (5)
  1. NORCO [Concomitant]
     Active Substance: ACETAMINOPHEN\HYDROCODONE BITARTRATE
  2. TRAZODONE [Concomitant]
     Active Substance: TRAZODONE HYDROCHLORIDE
  3. UNSPECIFIED MEDICATION(S) [Concomitant]
  4. REGRANEX [Suspect]
     Active Substance: BECAPLERMIN
     Indication: PSORIASIS
     Dosage: UNK UNK, ONCE
     Route: 061
     Dates: start: 201509, end: 201509
  5. GABAPENTIN. [Concomitant]
     Active Substance: GABAPENTIN

REACTIONS (5)
  - Inappropriate schedule of drug administration [Recovered/Resolved]
  - Off label use [Recovered/Resolved]
  - Application site pain [Recovering/Resolving]
  - Infection [Recovering/Resolving]
  - Application site erythema [Recovering/Resolving]

NARRATIVE: CASE EVENT DATE: 201509
